FAERS Safety Report 8988130 (Version 1)
Quarter: 2012Q4

REPORT INFORMATION
  Report Type: 
  Country: GB (occurrence: GB)
  Receive Date: 20121227
  Receipt Date: 20121227
  Transmission Date: 20130627
  Serious: Yes (Other)
  Sender: FDA-Public Use
  Company Number: JP-ASTRAZENECA-2012SE95771

PATIENT
  Age: 65 Year
  Sex: Male

DRUGS (2)
  1. AMIAS [Suspect]
     Indication: PRODUCT USED FOR UNKNOWN INDICATION
     Route: 048
  2. CANDESARTAN [Suspect]
     Indication: PRODUCT USED FOR UNKNOWN INDICATION
     Route: 048

REACTIONS (6)
  - Gastrointestinal carcinoma [Unknown]
  - Colon cancer [Unknown]
  - Prostate cancer [Unknown]
  - Underdose [Unknown]
  - Fatigue [Unknown]
  - Tablet physical issue [Unknown]
